FAERS Safety Report 7576868-7 (Version None)
Quarter: 2011Q2

REPORT INFORMATION
  Report Type: 
  Country: None (occurrence: None)
  Receive Date: 20110628
  Receipt Date: 20081112
  Transmission Date: 20111010
  Serious: Yes (Other)
  Sender: FDA-Public Use
  Company Number: US-BAYER-200829328NA

PATIENT
  Age: 62 Year
  Sex: Male
  Weight: 154 kg

DRUGS (33)
  1. WARFARIN SODIUM [Concomitant]
     Indication: BLOOD PRESSURE ABNORMAL
     Dosage: 5 MG (DAILY DOSE), ,
  2. PROCRIT [Concomitant]
     Indication: DIALYSIS
     Dosage: ON DIALYSIS DAYS
  3. ALBUTEROL SULFATE AUTOHALER [Concomitant]
  4. COREG [Concomitant]
     Indication: BLOOD PRESSURE ABNORMAL
  5. OPTIMARK [Suspect]
     Indication: PRODUCT USED FOR UNKNOWN INDICATION
  6. MULTIHANCE [Suspect]
     Indication: PRODUCT USED FOR UNKNOWN INDICATION
  7. SUPARTZ [Concomitant]
  8. AMIODARONE HCL [Concomitant]
     Indication: BLOOD PRESSURE ABNORMAL
     Dosage: 200 MG (DAILY DOSE), ,
  9. COUMADIN [Concomitant]
  10. MAGNEVIST [Suspect]
     Indication: ANGIOGRAM
     Dosage: 72 ML, ONCE
     Dates: start: 20041202, end: 20041202
  11. PROHANCE [Suspect]
     Indication: PRODUCT USED FOR UNKNOWN INDICATION
  12. AMIODARONE HCL [Concomitant]
     Indication: CARDIAC DISORDER
  13. HYDRALAZINE HCL [Concomitant]
     Indication: CARDIAC DISORDER
  14. COREG [Concomitant]
     Indication: CARDIAC DISORDER
  15. LISINOPRIL [Concomitant]
     Indication: BLOOD PRESSURE ABNORMAL
     Dosage: 10 MG (DAILY DOSE), ,
  16. HUMALOG [Concomitant]
     Indication: DIABETES MELLITUS
  17. IRON [IRON] [Concomitant]
     Indication: DIALYSIS
     Dosage: ON DIALYSIS DAYS
  18. ANTITHROMBOTIC AGENTS [Concomitant]
  19. ALDACTONE [Concomitant]
  20. OMNISCAN [Suspect]
     Indication: PRODUCT USED FOR UNKNOWN INDICATION
  21. HYDRALAZINE HCL [Concomitant]
     Indication: BLOOD PRESSURE ABNORMAL
     Dosage: 25 MG (DAILY DOSE), ,
  22. WARFARIN SODIUM [Concomitant]
     Indication: CARDIAC DISORDER
  23. IMDUR [Concomitant]
  24. OPTIRAY 300 [Concomitant]
     Dosage: 15 ML, ONCE
     Dates: start: 20041202, end: 20041202
  25. VITAMIN TAB [Concomitant]
  26. COREG [Concomitant]
  27. NESIRITIDE [Concomitant]
  28. POTASSIUM CHLORIDE [Concomitant]
  29. HYDRALAZINE HCL [Concomitant]
  30. LISINOPRIL [Concomitant]
     Indication: CARDIAC DISORDER
  31. LANTUS [Concomitant]
     Indication: DIABETES MELLITUS
  32. DEMADEX [Concomitant]
  33. ZOCOR [Concomitant]

REACTIONS (22)
  - PAIN IN EXTREMITY [None]
  - SKIN ULCER [None]
  - SKIN INDURATION [None]
  - MUSCULOSKELETAL CHEST PAIN [None]
  - EMOTIONAL DISTRESS [None]
  - JOINT INSTABILITY [None]
  - MUSCULAR WEAKNESS [None]
  - BURNING SENSATION [None]
  - PAIN [None]
  - CHEST PAIN [None]
  - GENERAL PHYSICAL HEALTH DETERIORATION [None]
  - PRURITUS [None]
  - ANXIETY [None]
  - FATIGUE [None]
  - ABASIA [None]
  - ARTHRALGIA [None]
  - JOINT SWELLING [None]
  - BACK PAIN [None]
  - INJURY [None]
  - MOBILITY DECREASED [None]
  - NEPHROGENIC SYSTEMIC FIBROSIS [None]
  - RASH [None]
